FAERS Safety Report 8919934 (Version 2)
Quarter: 2012Q4

REPORT INFORMATION
  Report Type: 
  Country: DE (occurrence: DE)
  Receive Date: 20121121
  Receipt Date: 20121130
  Transmission Date: 20130627
  Serious: Yes (Death)
  Sender: FDA-Public Use
  Company Number: DE-RANBAXY-2012RR-62179

PATIENT
  Age: 79 Year
  Sex: Female
  Weight: 52 kg

DRUGS (5)
  1. METFORMIN [Suspect]
     Indication: DIABETES MELLITUS
     Dosage: 1000 mg, bid
     Route: 065
  2. PRADAXA [Suspect]
     Indication: PERIPHERAL ARTERIAL OCCLUSIVE DISEASE
     Dosage: 150 mg, bid
     Route: 048
     Dates: start: 20120820
  3. CLOPIDOGREL [Concomitant]
     Indication: PERIPHERAL ARTERIAL OCCLUSIVE DISEASE
     Dosage: 75 mg, qd
     Route: 065
  4. OXYGESIC RET [Concomitant]
     Indication: ANALGESIC THERAPY
     Dosage: 5 mg, bid
     Route: 065
     Dates: start: 20120903, end: 20120904
  5. NOVALGIN TROPFEN [Concomitant]
     Indication: ANALGESIC THERAPY
     Dosage: 30 Gtt, qid
     Route: 065
     Dates: start: 20120902, end: 20120904

REACTIONS (5)
  - Hypotension [Fatal]
  - Lactic acidosis [Fatal]
  - Multi-organ failure [Fatal]
  - Resuscitation [Fatal]
  - Somnolence [Fatal]
